FAERS Safety Report 21726600 (Version 1)
Quarter: 2022Q4

REPORT INFORMATION
  Report Type: Other
  Country: MX (occurrence: None)
  Receive Date: 20221214
  Receipt Date: 20221214
  Transmission Date: 20230113
  Serious: Yes (Other)
  Sender: FDA-Public Use
  Company Number: MX-ROCHE-3240607

PATIENT
  Age: 56 Year
  Sex: Male

DRUGS (5)
  1. MABTHERA [Suspect]
     Active Substance: RITUXIMAB
     Indication: Non-Hodgkin^s lymphoma
     Dosage: DOSE AND FREQUENCY WERE NOT REPORTED
     Route: 065
  2. CYCLOPHOSPHAMIDE [Concomitant]
     Active Substance: CYCLOPHOSPHAMIDE
     Indication: Non-Hodgkin^s lymphoma
     Dosage: DOSE AND FREQUENCY WERE NOT REPORTED
  3. CORTISONE [Concomitant]
     Active Substance: CORTISONE
     Indication: Non-Hodgkin^s lymphoma
  4. DOXORUBICIN [Concomitant]
     Active Substance: DOXORUBICIN
     Indication: Non-Hodgkin^s lymphoma
  5. VINCRISTINE [Concomitant]
     Active Substance: VINCRISTINE
     Indication: Non-Hodgkin^s lymphoma

REACTIONS (9)
  - Asthenia [Unknown]
  - Depression [Unknown]
  - Immunosuppression [Unknown]
  - Alopecia [Unknown]
  - Depressed mood [Unknown]
  - Pain [Unknown]
  - Insomnia [Unknown]
  - Mobility decreased [Unknown]
  - Dysphagia [Unknown]
